FAERS Safety Report 8965090 (Version 1)
Quarter: 2012Q4

REPORT INFORMATION
  Report Type: Report from Study
  Country: DE (occurrence: DE)
  Receive Date: 20121213
  Receipt Date: 20121213
  Transmission Date: 20130627
  Serious: Yes (Hospitalization)
  Sender: FDA-Public Use
  Company Number: DE-ELI_LILLY_AND_COMPANY-DE201212000641

PATIENT
  Age: 67 Year
  Sex: Male
  Weight: 74 kg

DRUGS (15)
  1. PEMETREXED [Suspect]
     Indication: PRODUCT USED FOR UNKNOWN INDICATION
     Dosage: UNK
     Dates: start: 20080707, end: 20080707
  2. BEVACIZUMAB [Suspect]
     Indication: NON-SMALL CELL LUNG CANCER
     Dosage: 1170 mg, 1 in 3 weeks
     Route: 042
     Dates: start: 20070829
  3. CISPLATIN [Suspect]
     Indication: PRODUCT USED FOR UNKNOWN INDICATION
     Dosage: UNK
     Dates: start: 20070829
  4. CISPLATIN [Suspect]
     Dosage: UNK
     Dates: start: 20080707
  5. VINORELBINE [Suspect]
     Dosage: UNK
     Dates: start: 20070829, end: 20071227
  6. FONDAPARINUX SODIUM [Concomitant]
     Dosage: UNK
     Dates: start: 20080605
  7. EMEND [Concomitant]
     Dosage: UNK
     Dates: start: 20080607
  8. LORAZEPAM [Concomitant]
     Dosage: 1 mg, prn
     Dates: start: 20080707
  9. MCP [Concomitant]
     Dosage: UNK
     Dates: start: 20080707
  10. VITAMIN B6 [Concomitant]
     Dosage: 40 mg, UNK
     Dates: start: 20080228
  11. TEPILTA [Concomitant]
     Dosage: UNK
     Dates: start: 20070905
  12. BACLOFEN [Concomitant]
     Dosage: UNK
     Dates: start: 20070905
  13. OMEPRAZOLE [Concomitant]
     Dosage: UNK
     Dates: start: 20070905
  14. NOCTAMID [Concomitant]
     Dosage: UNK
     Dates: start: 20070912
  15. DEXAMETHASONE [Concomitant]
     Dosage: UNK
     Dates: start: 20070829, end: 20071218

REACTIONS (1)
  - Haematemesis [Recovered/Resolved]
